FAERS Safety Report 4697989-2 (Version None)
Quarter: 2005Q2

REPORT INFORMATION
  Report Type: 
  Country: None (occurrence: None)
  Receive Date: 20050621
  Receipt Date: 20050610
  Transmission Date: 20051028
  Serious: Yes (Hospitalization)
  Sender: FDA-Public Use
  Company Number: 2005087138

PATIENT
  Age: 49 Year
  Sex: Male

DRUGS (5)
  1. SOLU-MEDROL [Suspect]
     Indication: ILL-DEFINED DISORDER
     Dosage: 250 MG (250 MG, 1 IN 1 D), INTRAVENOUS
     Route: 042
     Dates: start: 20050503
  2. ATARAX [Suspect]
     Indication: ILL-DEFINED DISORDER
     Dosage: ORAL
     Route: 048
     Dates: start: 20050503, end: 20050503
  3. POLARAMINE [Suspect]
     Indication: ILL-DEFINED DISORDER
     Dosage: INTRAVENOUS
     Route: 042
     Dates: start: 20050503, end: 20050503
  4. CELLCEPT [Suspect]
     Indication: ILL-DEFINED DISORDER
     Dosage: 1 GRAM (IDAILY), ORAL
     Route: 048
     Dates: start: 20050503
  5. SIMULECT [Suspect]
     Indication: ILL-DEFINED DISORDER
     Dosage: 20 MG (DAILY), INTRAVENOUS
     Route: 042
     Dates: start: 20050503, end: 20050503

REACTIONS (5)
  - ANURIA [None]
  - DRUG INTOLERANCE [None]
  - HAEMOLYTIC URAEMIC SYNDROME [None]
  - PLATELET COUNT DECREASED [None]
  - POST PROCEDURAL COMPLICATION [None]
